FAERS Safety Report 23961650 (Version 2)
Quarter: 2024Q3

REPORT INFORMATION
  Report Type: Report from Study
  Country: CA (occurrence: CA)
  Receive Date: 20240611
  Receipt Date: 20240712
  Transmission Date: 20241016
  Serious: Yes (Hospitalization, Other)
  Sender: SAMSUNG BIOEPIS
  Company Number: CA-SAMSUNG BIOEPIS-SB-2024-12637

PATIENT
  Age: 79 Year
  Sex: Female

DRUGS (2)
  1. ETANERCEPT [Suspect]
     Active Substance: ETANERCEPT
     Indication: Rheumatoid arthritis
     Route: 065
     Dates: start: 20240409
  2. KEFLEX [Suspect]
     Active Substance: CEPHALEXIN
     Indication: Localised infection
     Route: 065

REACTIONS (7)
  - Localised infection [Not Recovered/Not Resolved]
  - Obstructive airways disorder [Unknown]
  - Cellulitis [Unknown]
  - Sinusitis [Unknown]
  - Clostridium difficile infection [Unknown]
  - Vomiting [Unknown]
  - Oesophagitis [Unknown]
